FAERS Safety Report 6998346-6 (Version None)
Quarter: 2010Q3

REPORT INFORMATION
  Report Type: 
  Country: None (occurrence: None)
  Receive Date: 20100920
  Receipt Date: 20100907
  Transmission Date: 20110219
  Serious: Yes (Hospitalization)
  Sender: FDA-Public Use
  Company Number: CA-JNJFOC-20100900736

PATIENT
  Sex: Female
  Weight: 80 kg

DRUGS (15)
  1. REMICADE [Suspect]
     Indication: PSORIASIS
     Route: 042
  2. REMICADE [Suspect]
     Route: 042
  3. METFORMIN [Concomitant]
     Route: 048
  4. DIOVAN HCT [Concomitant]
     Route: 048
  5. GLYBURIDE [Concomitant]
     Route: 048
  6. SIMVASTATIN [Concomitant]
     Route: 048
  7. CYCLOBENZAPRINE [Concomitant]
     Route: 048
  8. PANTOPRAZOLE [Concomitant]
     Route: 048
  9. ADALAT [Concomitant]
     Route: 048
  10. NOVO-GESIC [Concomitant]
     Route: 048
  11. ACTONEL [Concomitant]
     Route: 048
  12. FERROUS SULFATE [Concomitant]
     Route: 048
  13. BIOCAL D FORTE [Concomitant]
     Route: 048
  14. EFFEXOR [Concomitant]
     Route: 048
  15. DIPROSALIC [Concomitant]
     Route: 061

REACTIONS (5)
  - BLOOD GLUCOSE INCREASED [None]
  - BLOOD PRESSURE DECREASED [None]
  - CHOLECYSTITIS [None]
  - DIARRHOEA [None]
  - MALAISE [None]
